FAERS Safety Report 10081216 (Version 1)
Quarter: 2014Q2

REPORT INFORMATION
  Report Type: Spontaneous
  Country: US (occurrence: US)
  Receive Date: 20140416
  Receipt Date: 20140416
  Transmission Date: 20141212
  Serious: No
  Sender: FDA-Public Use
  Company Number: US-PFIZER INC-2014102623

PATIENT
  Age: 55 Year
  Sex: Female
  Weight: 78.01 kg

DRUGS (3)
  1. LYRICA [Suspect]
     Indication: FIBROMYALGIA
     Dosage: 75 MG, 2X/DAY
     Route: 048
     Dates: start: 201401, end: 201403
  2. BUPROPION [Concomitant]
     Indication: DEPRESSION
     Dosage: 150 MG, 1X/DAY
     Route: 048
  3. ABILIFY [Concomitant]
     Indication: BIPOLAR DISORDER
     Dosage: 15 MG, 2X/DAY
     Route: 048

REACTIONS (2)
  - Pain [Not Recovered/Not Resolved]
  - Hypokinesia [Not Recovered/Not Resolved]
